FAERS Safety Report 5164917-5 (Version None)
Quarter: 2006Q4

REPORT INFORMATION
  Report Type: 
  Country: None (occurrence: None)
  Receive Date: 20061205
  Receipt Date: 20061123
  Transmission Date: 20070319
  Serious: Yes (Other)
  Sender: FDA-Public Use
  Company Number: AU-ELI_LILLY_AND_COMPANY-AU200611005559

PATIENT
  Age: 13 Year
  Sex: Male
  Weight: 51 kg

DRUGS (1)
  1. STRATTERA [Suspect]
     Dosage: UNK, DAILY (1/D)
     Route: 048
     Dates: start: 20050310, end: 20050512

REACTIONS (4)
  - AGGRESSION [None]
  - CHEST PAIN [None]
  - COUGH [None]
  - HOSTILITY [None]
